FAERS Safety Report 16313816 (Version 1)
Quarter: 2019Q2

REPORT INFORMATION
  Report Type: Spontaneous
  Country: JP (occurrence: JP)
  Receive Date: 20190515
  Receipt Date: 20190515
  Transmission Date: 20190711
  Serious: Yes (Other)
  Sender: FDA-Public Use
  Company Number: JP-ASTRAZENECA-2019SE70584

PATIENT
  Age: 59 Year
  Sex: Female

DRUGS (26)
  1. TMP/SMX [Suspect]
     Active Substance: SULFAMETHOXAZOLE\TRIMETHOPRIM
     Route: 065
  2. AMPICILLIN/SULBACTUM [Suspect]
     Active Substance: AMPICILLIN SODIUM\SULBACTAM SODIUM
     Route: 065
  3. ESOMEPRAZOLE. [Suspect]
     Active Substance: ESOMEPRAZOLE MAGNESIUM
     Route: 048
  4. SPIRONOLACTONE. [Suspect]
     Active Substance: SPIRONOLACTONE
     Route: 065
  5. MOGAMULIZUMAB [Suspect]
     Active Substance: MOGAMULIZUMAB
     Indication: ADULT T-CELL LYMPHOMA/LEUKAEMIA
     Route: 065
  6. MAGNESIUM OXIDE. [Suspect]
     Active Substance: MAGNESIUM OXIDE
     Route: 065
  7. FLUCONAZOLE. [Suspect]
     Active Substance: FLUCONAZOLE
     Route: 065
  8. LENALIDOMIDE [Suspect]
     Active Substance: LENALIDOMIDE
     Route: 065
  9. URSODEOXYCHOLIC ACID [Suspect]
     Active Substance: URSODIOL
     Route: 065
  10. ACICLOVIR [Suspect]
     Active Substance: ACYCLOVIR
     Route: 065
  11. EDOXABAN [Suspect]
     Active Substance: EDOXABAN TOSYLATE
     Route: 065
  12. FEBUXOSTAT. [Suspect]
     Active Substance: FEBUXOSTAT
     Route: 065
  13. TRAMADOL/ACETAMINOPHEN [Suspect]
     Active Substance: ACETAMINOPHEN\TRAMADOL
     Route: 065
  14. PROCHLORPERAZINE. [Suspect]
     Active Substance: PROCHLORPERAZINE
     Route: 065
  15. FUROSEMIDE. [Suspect]
     Active Substance: FUROSEMIDE
     Route: 065
  16. TMP/SMX [Suspect]
     Active Substance: SULFAMETHOXAZOLE\TRIMETHOPRIM
     Route: 065
  17. SENNOSIDE [Suspect]
     Active Substance: SENNOSIDES
     Route: 065
  18. VONOPRAZAN FUMARATE [Suspect]
     Active Substance: VONOPRAZAN FUMURATE
     Route: 065
  19. VALGANCICLOVIR. [Suspect]
     Active Substance: VALGANCICLOVIR
     Route: 065
  20. ESOMEPRAZOLE. [Suspect]
     Active Substance: ESOMEPRAZOLE MAGNESIUM
     Route: 048
  21. LENALIDOMIDE [Suspect]
     Active Substance: LENALIDOMIDE
     Route: 065
  22. SITAFLOXACIN [Suspect]
     Active Substance: SITAFLOXACIN
     Route: 065
  23. FAMOTIDINE. [Suspect]
     Active Substance: FAMOTIDINE
     Route: 065
  24. LENALIDOMIDE [Suspect]
     Active Substance: LENALIDOMIDE
     Route: 065
  25. ATOVAQUONE. [Suspect]
     Active Substance: ATOVAQUONE
     Route: 065
  26. FOSCARNET [Suspect]
     Active Substance: FOSCARNET
     Route: 065

REACTIONS (2)
  - Rash maculo-papular [Unknown]
  - Drug hypersensitivity [Unknown]
